FAERS Safety Report 7110336-1 (Version None)
Quarter: 2010Q4

REPORT INFORMATION
  Report Type: 
  Country: None (occurrence: None)
  Receive Date: 20101118
  Receipt Date: 20101115
  Transmission Date: 20110411
  Serious: Yes (Hospitalization)
  Sender: FDA-Public Use
  Company Number: US-PFIZER INC-2010148544

PATIENT
  Sex: Male
  Weight: 97.7 kg

DRUGS (10)
  1. TIKOSYN [Suspect]
     Indication: ATRIAL FIBRILLATION
     Dosage: 500 UG, 2X/DAY
     Route: 048
  2. ALBUTEROL [Concomitant]
     Dosage: UNK
  3. DUONEB [Concomitant]
     Dosage: UNK
  4. ZITHROMAX [Concomitant]
     Dosage: UNK
  5. SYMBICORT [Concomitant]
     Dosage: UNK
  6. ROCEPHIN [Concomitant]
     Dosage: UNK
  7. CARDIZEM [Concomitant]
     Dosage: UNK
  8. PREDNISONE [Concomitant]
     Dosage: UNK
  9. FLONASE [Concomitant]
     Dosage: UNK
     Route: 045
  10. WARFARIN [Concomitant]
     Dosage: UNK

REACTIONS (2)
  - BLOOD SODIUM DECREASED [None]
  - PNEUMONIA [None]
